FAERS Safety Report 24439830 (Version 3)
Quarter: 2024Q4

REPORT INFORMATION
  Report Type: Report from Study
  Country: CA (occurrence: CA)
  Receive Date: 20241015
  Receipt Date: 20241126
  Transmission Date: 20250114
  Serious: Yes (Hospitalization)
  Sender: BIOGEN
  Company Number: CA-BIOGEN-2024BI01285947

PATIENT
  Age: 20 Year
  Sex: Male

DRUGS (1)
  1. SPINRAZA [Suspect]
     Active Substance: NUSINERSEN
     Indication: Spinal muscular atrophy
     Dosage: DAYS 0 14 28 58 AND EVERY 4 MONTHS THEREAFTER
     Route: 050
     Dates: start: 20191115

REACTIONS (7)
  - Gastrointestinal tract irritation [Not Recovered/Not Resolved]
  - Asthenia [Unknown]
  - Hypophagia [Unknown]
  - Weight decreased [Unknown]
  - Oesophagitis [Unknown]
  - Post procedural infection [Unknown]
  - Blood potassium decreased [Recovered/Resolved]

NARRATIVE: CASE EVENT DATE: 20241001
